FAERS Safety Report 4787444-3 (Version None)
Quarter: 2005Q4

REPORT INFORMATION
  Report Type: 
  Country: None (occurrence: None)
  Receive Date: 20051003
  Receipt Date: 20050914
  Transmission Date: 20060501
  Serious: Yes (Death)
  Sender: FDA-Public Use
  Company Number: 200513008GDS

PATIENT
  Age: 47 Year

DRUGS (3)
  1. NIFEDIPINE [Suspect]
  2. DILTIAZEM [Suspect]
  3. COCAINE [Suspect]
     Dosage: RESPIRATORY (INHALATION)
     Route: 055

REACTIONS (3)
  - DRUG ABUSER [None]
  - INTENTIONAL DRUG MISUSE [None]
  - MULTIPLE DRUG OVERDOSE [None]
